FAERS Safety Report 9858465 (Version 1)
Quarter: 2014Q1

REPORT INFORMATION
  Report Type: Spontaneous
  Country: US (occurrence: US)
  Receive Date: 20140131
  Receipt Date: 20140131
  Transmission Date: 20141002
  Serious: Yes (Hospitalization, Other)
  Sender: FDA-Public Use
  Company Number: US-ASTRAZENECA-2014SE05348

PATIENT
  Age: 573 Month
  Sex: Female
  Weight: 81.6 kg

DRUGS (9)
  1. BRILINTA [Suspect]
     Indication: ACUTE CORONARY SYNDROME
     Route: 048
     Dates: start: 20140109, end: 20140112
  2. BRILINTA [Suspect]
     Indication: STENT PLACEMENT
     Route: 048
     Dates: start: 20140109, end: 20140112
  3. BRILINTA [Suspect]
     Indication: ACUTE CORONARY SYNDROME
     Route: 048
     Dates: start: 20140120
  4. BRILINTA [Suspect]
     Indication: STENT PLACEMENT
     Route: 048
     Dates: start: 20140120
  5. KEPPRA [Suspect]
  6. METOPROLOL [Suspect]
     Indication: CONTRAST MEDIA REACTION
  7. ASPIRIN [Concomitant]
  8. PLAVIX [Concomitant]
  9. BENEDRYL [Concomitant]
     Indication: CONTRAST MEDIA REACTION

REACTIONS (11)
  - Rash [Recovering/Resolving]
  - Dyspnoea [Unknown]
  - Gastric haemorrhage [Unknown]
  - Cystitis interstitial [Unknown]
  - Chromaturia [Unknown]
  - Myocardial infarction [Unknown]
  - Contrast media reaction [Unknown]
  - Influenza [Recovered/Resolved]
  - Malaise [Unknown]
  - Eye disorder [Unknown]
  - Intentional drug misuse [Unknown]
